FAERS Safety Report 5032716-0 (Version None)
Quarter: 2006Q2

REPORT INFORMATION
  Report Type: 
  Country: None (occurrence: None)
  Receive Date: 20060622
  Receipt Date: 20060309
  Transmission Date: 20061013
  Serious: Yes (Life-Threatening, Disabling)
  Sender: FDA-Public Use
  Company Number: 2006AP01216

PATIENT
  Age: 27795 Day
  Sex: Male

DRUGS (27)
  1. CRESTOR [Suspect]
     Indication: HYPERCHOLESTEROLAEMIA
     Route: 048
     Dates: start: 20051221, end: 20060302
  2. CRESTOR [Suspect]
     Route: 048
     Dates: start: 20060328
  3. NU-LOTAN [Concomitant]
     Indication: HYPERTENSION
     Route: 048
  4. ALLOPURINOL [Concomitant]
     Indication: HYPERURICAEMIA
     Route: 048
  5. OMEPRAL [Concomitant]
     Indication: GASTRITIS
     Route: 048
  6. EUGLUCON [Concomitant]
     Indication: DIABETES MELLITUS
     Route: 048
  7. CARDENALIN [Concomitant]
     Indication: HYPERTENSION
     Route: 048
  8. AMLODIN [Concomitant]
     Indication: HYPERTENSION
     Route: 048
  9. PANALDINE [Concomitant]
     Indication: THROMBOSIS PROPHYLAXIS
     Route: 048
  10. PRORENAL [Concomitant]
     Indication: ARTERIOSCLEROSIS OBLITERANS
     Route: 048
  11. SIGMART [Concomitant]
     Indication: ANGINA PECTORIS
     Route: 048
  12. ASPIRIN [Concomitant]
     Indication: THROMBOSIS PROPHYLAXIS
     Route: 048
  13. PURSENNID [Concomitant]
     Indication: CONSTIPATION
     Route: 048
  14. MEVALOTIN [Concomitant]
     Dosage: PAST DRUG HISTORY
  15. NITOROL [Concomitant]
     Dosage: PAST DRUG HISTORY
  16. NITRODERM [Concomitant]
     Indication: ANGINA PECTORIS
     Dates: start: 20060304, end: 20060308
  17. ALBUMINAR [Concomitant]
     Indication: AORTIC BYPASS
     Route: 041
     Dates: start: 20060303, end: 20060304
  18. PREDOPA [Concomitant]
     Indication: AORTIC BYPASS
     Route: 041
     Dates: start: 20060303, end: 20060308
  19. LIPLE [Concomitant]
     Indication: ARTERIOSCLEROSIS OBLITERANS
     Route: 013
     Dates: start: 20060303, end: 20060303
  20. ALPROSTADIL [Concomitant]
     Indication: ARTERIOSCLEROSIS OBLITERANS
     Route: 042
     Dates: start: 20060304, end: 20060304
  21. METILON [Concomitant]
     Indication: ANTIPYRESIS
     Route: 058
     Dates: start: 20060304, end: 20060304
  22. LASIX [Concomitant]
     Route: 048
  23. MUCODYNE [Concomitant]
     Indication: SPUTUM RETENTION
     Route: 048
     Dates: start: 20060305, end: 20060310
  24. BISOLVON [Concomitant]
     Indication: SPUTUM RETENTION
     Route: 048
     Dates: start: 20060305, end: 20060310
  25. HANP [Concomitant]
     Indication: CARDIOGENIC SHOCK
     Route: 042
     Dates: start: 20060303, end: 20060305
  26. PERDIPINE [Concomitant]
     Indication: HYPERTENSION
     Route: 042
     Dates: start: 20060303, end: 20060305
  27. CEFAMEZIN ALPHA [Concomitant]
     Indication: INFECTION PROPHYLAXIS
     Dates: start: 20060303, end: 20060305

REACTIONS (23)
  - ALANINE AMINOTRANSFERASE INCREASED [None]
  - ANAEMIA [None]
  - ASPARTATE AMINOTRANSFERASE INCREASED [None]
  - BLOOD ALKALINE PHOSPHATASE INCREASED [None]
  - BLOOD LACTATE DEHYDROGENASE INCREASED [None]
  - C-REACTIVE PROTEIN INCREASED [None]
  - CARDIAC FAILURE [None]
  - CEREBRAL ARTERY OCCLUSION [None]
  - CEREBRAL INFARCTION [None]
  - CORONARY ARTERY RESTENOSIS [None]
  - DEHYDRATION [None]
  - DYSARTHRIA [None]
  - DYSPNOEA [None]
  - GAMMA-GLUTAMYLTRANSFERASE INCREASED [None]
  - HEMIPARESIS [None]
  - INSOMNIA [None]
  - MYOCARDIAL INFARCTION [None]
  - PLATELET COUNT DECREASED [None]
  - POSTOPERATIVE INFECTION [None]
  - PYREXIA [None]
  - SCROTAL SWELLING [None]
  - STRESS [None]
  - VISUAL FIELD DEFECT [None]
